FAERS Safety Report 24069819 (Version 1)
Quarter: 2024Q3

REPORT INFORMATION
  Report Type: Report from Study
  Country: DE (occurrence: DE)
  Receive Date: 20240710
  Receipt Date: 20240710
  Transmission Date: 20241017
  Serious: No
  Sender: ROCHE
  Company Number: DE-ROCHE-3560258

PATIENT
  Age: 66 Year
  Sex: Female

DRUGS (1)
  1. FARICIMAB [Suspect]
     Active Substance: FARICIMAB
     Indication: Neovascular age-related macular degeneration
     Dosage: DOSE CONCENTRATION 120 MG/ML?TOTAL VOLUME PRIOR AE 0.05 ML
     Route: 050
     Dates: start: 20240408

REACTIONS (1)
  - Respiratory tract infection bacterial [Unknown]

NARRATIVE: CASE EVENT DATE: 20240503
